FAERS Safety Report 6307820-7 (Version None)
Quarter: 2009Q3

REPORT INFORMATION
  Report Type: 
  Country: None (occurrence: None)
  Receive Date: 20090813
  Receipt Date: 20090507
  Transmission Date: 20100115
  Serious: No
  Sender: FDA-Public Use
  Company Number: US-BAYER-200915761NA

PATIENT
  Age: 11 Year
  Sex: Female
  Weight: 56 kg

DRUGS (1)
  1. YAZ [Suspect]
     Indication: CONTRACEPTION
     Route: 048
     Dates: start: 20090412

REACTIONS (7)
  - ABDOMINAL DISTENSION [None]
  - ABNORMAL WITHDRAWAL BLEEDING [None]
  - DYSMENORRHOEA [None]
  - INCREASED APPETITE [None]
  - MENOMETRORRHAGIA [None]
  - MENORRHAGIA [None]
  - NAUSEA [None]
